FAERS Safety Report 26050794 (Version 1)
Quarter: 2025Q4

REPORT INFORMATION
  Report Type: Spontaneous
  Country: US (occurrence: US)
  Receive Date: 20251116
  Receipt Date: 20251116
  Transmission Date: 20260118
  Serious: No
  Sender: BOEHRINGER INGELHEIM
  Company Number: US-Komodo Health-a23aa00000C08t7AAB

PATIENT
  Age: 4 Year
  Sex: Female

DRUGS (2)
  1. SPIRIVA [Suspect]
     Active Substance: TIOTROPIUM BROMIDE MONOHYDRATE
     Indication: Bronchopulmonary dysplasia
     Dosage: 1 CAPSULE DISSOLVED IN 3-5ML ONCE DAILY
  2. ALVESCO [Concomitant]
     Active Substance: CICLESONIDE
     Indication: Bronchopulmonary dysplasia

REACTIONS (5)
  - Oxygen saturation decreased [Not Recovered/Not Resolved]
  - Off label use [Unknown]
  - Off label use of device [Unknown]
  - Off label use of device [Unknown]
  - Off label use [Unknown]

NARRATIVE: CASE EVENT DATE: 20250101
